FAERS Safety Report 5624930-8 (Version None)
Quarter: 2008Q1

REPORT INFORMATION
  Report Type: 
  Country: None (occurrence: None)
  Receive Date: 20080213
  Receipt Date: 20080204
  Transmission Date: 20080703
  Serious: Yes (Other)
  Sender: FDA-Public Use
  Company Number: US-ASTRAZENECA-2008UW02612

PATIENT
  Sex: Female

DRUGS (1)
  1. ARIMIDEX [Suspect]

REACTIONS (3)
  - MALAISE [None]
  - PALPITATIONS [None]
  - POISONING [None]
